FAERS Safety Report 24607490 (Version 1)
Quarter: 2024Q4

REPORT INFORMATION
  Report Type: Spontaneous
  Country: US (occurrence: None)
  Receive Date: 20241111
  Receipt Date: 20241111
  Transmission Date: 20250114
  Serious: Yes (Other)
  Sender: Public
  Company Number: None

PATIENT
  Age: 75 Year
  Sex: Female

DRUGS (2)
  1. BRAFTOVI [Suspect]
     Active Substance: ENCORAFENIB
     Dosage: FREQUENCY : DAILY;?
     Route: 048
     Dates: start: 20241107, end: 20241108
  2. MEKTOVI [Concomitant]
     Active Substance: BINIMETINIB
     Dates: start: 20241107, end: 20241108

REACTIONS (5)
  - Diarrhoea [None]
  - Vision blurred [None]
  - Dizziness [None]
  - Chest pain [None]
  - Visual impairment [None]

NARRATIVE: CASE EVENT DATE: 20241108
